FAERS Safety Report 7506473-X (Version None)
Quarter: 2011Q2

REPORT INFORMATION
  Report Type: 
  Country: None (occurrence: None)
  Receive Date: 20110519
  Receipt Date: 20110504
  Transmission Date: 20111010
  Serious: Yes (Other)
  Sender: FDA-Public Use
  Company Number: AUR-APL-2010-01595

PATIENT

DRUGS (2)
  1. FINASTERIDE [Suspect]
     Indication: BENIGN PROSTATIC HYPERPLASIA
     Dosage: 5MG-DAILY-ORAL
     Route: 048
     Dates: start: 20100901
  2. IBUPROFEN [Concomitant]

REACTIONS (3)
  - ECZEMA [None]
  - PENIS DISORDER [None]
  - PROSTATITIS [None]
